FAERS Safety Report 6727541-6 (Version None)
Quarter: 2010Q2

REPORT INFORMATION
  Report Type: 
  Country: None (occurrence: None)
  Receive Date: 20100517
  Receipt Date: 20100504
  Transmission Date: 20101027
  Serious: Yes (Other)
  Sender: FDA-Public Use
  Company Number: PHHY2010EG28873

PATIENT
  Sex: Male
  Weight: 66 kg

DRUGS (1)
  1. EVEROLIMUS [Suspect]
     Dosage: 0.75 MG, BID
     Route: 048
     Dates: start: 20100330, end: 20100412

REACTIONS (5)
  - ABDOMINAL PAIN [None]
  - BLOOD CREATININE INCREASED [None]
  - NEPHROSTOMY [None]
  - OLIGURIA [None]
  - URETERONEOCYSTOSTOMY [None]
